FAERS Safety Report 9776825 (Version 1)
Quarter: 2013Q4

REPORT INFORMATION
  Report Type: Spontaneous
  Country: TR (occurrence: TR)
  Receive Date: 20131221
  Receipt Date: 20131221
  Transmission Date: 20140711
  Serious: Yes (Death)
  Sender: FDA-Public Use
  Company Number: PHHY2013TR147693

PATIENT
  Age: 7 Month
  Sex: Female

DRUGS (1)
  1. OCTREOTIDE [Suspect]
     Indication: OBESITY

REACTIONS (3)
  - Sleep apnoea syndrome [Fatal]
  - Drug ineffective [Unknown]
  - Diarrhoea [Unknown]
